FAERS Safety Report 4315171-5 (Version None)
Quarter: 2004Q1

REPORT INFORMATION
  Report Type: 
  Country: None (occurrence: None)
  Receive Date: 20040310
  Receipt Date: 20040224
  Transmission Date: 20041129
  Serious: Yes (Hospitalization)
  Sender: FDA-Public Use
  Company Number: US-JNJFOC-20040205909

PATIENT
  Age: 71 Year
  Sex: Female
  Weight: 117.9352 kg

DRUGS (12)
  1. INFLIXIMAB (INFLIXIMAB, RECOMBINANT) LYOPHILIZED POWDER [Suspect]
     Indication: RHEUMATOID ARTHRITIS
     Dosage: INTRAVENOUS
     Route: 042
     Dates: start: 20011205, end: 20030515
  2. METHOTREXATE [Concomitant]
  3. DIOVAN [Concomitant]
  4. LEVOXYL [Concomitant]
  5. GLUCOSAMINE (GLUCOSAMINE) [Concomitant]
  6. ARTHROTEC [Concomitant]
  7. EVISTA [Concomitant]
  8. FOLIC ACID [Concomitant]
  9. TYLENOL [Concomitant]
  10. CALCIUM MAGNESIUM (CACLCIUM W/MAGNESIUM) [Concomitant]
  11. TUMS (CALCIUM CARBONATE) [Concomitant]
  12. HERBAL SUPPLEMENTS (HERBAL SUPPLEMENTS) [Concomitant]

REACTIONS (2)
  - BACK PAIN [None]
  - COLITIS ISCHAEMIC [None]
